FAERS Safety Report 19095921 (Version 6)
Quarter: 2022Q1

REPORT INFORMATION
  Report Type: Spontaneous
  Country: JP (occurrence: JP)
  Receive Date: 20210406
  Receipt Date: 20220206
  Transmission Date: 20220424
  Serious: Yes (Other)
  Sender: FDA-Public Use
  Company Number: NVSJ2021JP004043

PATIENT
  Age: 77 Year
  Sex: Male

DRUGS (2)
  1. BEOVU [Suspect]
     Active Substance: BROLUCIZUMAB-DBLL
     Indication: Age-related macular degeneration
     Dosage: 6 MG (LEFT EYE)
     Route: 031
     Dates: start: 20210129, end: 20210129
  2. MOXIFLOXACIN HYDROCHLORIDE [Concomitant]
     Active Substance: MOXIFLOXACIN HYDROCHLORIDE
     Indication: Premedication
     Dosage: UNK UNK, QID, BOTH EYES
     Route: 047
     Dates: start: 20210126, end: 20210201

REACTIONS (9)
  - Subretinal fluid [Unknown]
  - Keratic precipitates [Not Recovered/Not Resolved]
  - Iritis [Recovering/Resolving]
  - Vision blurred [Unknown]
  - Concomitant disease aggravated [Unknown]
  - Anterior chamber cell [Unknown]
  - Visual acuity reduced [Recovered/Resolved]
  - Anterior chamber flare [Unknown]
  - Corneal disorder [Recovered/Resolved]

NARRATIVE: CASE EVENT DATE: 20210305
